FAERS Safety Report 13687937 (Version 2)
Quarter: 2017Q3

REPORT INFORMATION
  Report Type: Report from Study
  Country: None (occurrence: US)
  Receive Date: 20170626
  Receipt Date: 20170809
  Transmission Date: 20171127
  Serious: Yes (Hospitalization, Other)
  Sender: FDA-Public Use
  Company Number: US-ABBVIE-17K-163-2015324-00

PATIENT
  Sex: Female

DRUGS (1)
  1. HUMIRA [Suspect]
     Active Substance: ADALIMUMAB
     Indication: CROHN^S DISEASE
     Route: 058

REACTIONS (7)
  - Cardiac arrest [Recovered/Resolved]
  - Poor peripheral circulation [Recovering/Resolving]
  - Localised infection [Unknown]
  - Fungal infection [Unknown]
  - Abdominal hernia [Unknown]
  - Throat cancer [Unknown]
  - Contrast media allergy [Unknown]

NARRATIVE: CASE EVENT DATE: 2017
